FAERS Safety Report 22036315 (Version 2)
Quarter: 2023Q1

REPORT INFORMATION
  Report Type: Report from Study
  Country: US (occurrence: US)
  Receive Date: 20230225
  Receipt Date: 20230307
  Transmission Date: 20230417
  Serious: No
  Sender: FDA-Public Use
  Company Number: US-002147023-NVSC2023US044127

PATIENT
  Sex: Male

DRUGS (1)
  1. ZOLGENSMA [Suspect]
     Active Substance: ONASEMNOGENE ABEPARVOVEC-XIOI
     Indication: Spinal muscular atrophy
     Dosage: UNK UNK, ONCE/SINGLE
     Route: 042
     Dates: start: 20230209, end: 20230209

REACTIONS (2)
  - Hepatic enzyme increased [Unknown]
  - Troponin I increased [Unknown]
